FAERS Safety Report 23921901 (Version 2)
Quarter: 2024Q2

REPORT INFORMATION
  Report Type: Report from Study
  Country: US (occurrence: US)
  Receive Date: 20240530
  Receipt Date: 20240601
  Transmission Date: 20240716
  Serious: Yes (Death)
  Sender: FDA-Public Use
  Company Number: US-ABBVIE-5780803

PATIENT
  Sex: Female
  Weight: 54.431 kg

DRUGS (1)
  1. CREON [Suspect]
     Active Substance: PANCRELIPASE AMYLASE\PANCRELIPASE LIPASE\PANCRELIPASE PROTEASE
     Indication: Product used for unknown indication
     Dosage: FORM STRENGTH: 36000 UNIT?DR?TAKE 1 TO 2 CAPSULES BY MOUTH WITH MEALS AND TAKE 1 CAPSULES BY MOUT...
     Route: 048

REACTIONS (1)
  - Pancreatic carcinoma [Fatal]
